FAERS Safety Report 13195580 (Version 2)
Quarter: 2017Q1

REPORT INFORMATION
  Report Type: Spontaneous
  Country: US (occurrence: US)
  Receive Date: 20170208
  Receipt Date: 20170310
  Transmission Date: 20170428
  Serious: Yes (Other)
  Sender: FDA-Public Use
  Company Number: US-ALEXION PHARMACEUTICALS INC.-A201701030

PATIENT
  Sex: Female

DRUGS (1)
  1. STRENSIQ [Suspect]
     Active Substance: ASFOTASE ALFA
     Indication: HYPOPHOSPHATASIA
     Dosage: 108 MG, TIW
     Route: 058
     Dates: start: 20170121

REACTIONS (5)
  - Cerebrovascular accident [Unknown]
  - Hypotension [Unknown]
  - Mental disorder [Unknown]
  - Hemiparesis [Unknown]
  - Aphasia [Unknown]

NARRATIVE: CASE EVENT DATE: 20170127
